FAERS Safety Report 21391821 (Version 1)
Quarter: 2022Q3

REPORT INFORMATION
  Report Type: Spontaneous
  Country: US (occurrence: US)
  Receive Date: 20220929
  Receipt Date: 20220929
  Transmission Date: 20221026
  Serious: No
  Sender: FDA-Public Use
  Company Number: US-KARYOPHARM-2022KPT001097

PATIENT

DRUGS (16)
  1. XPOVIO [Suspect]
     Active Substance: SELINEXOR
     Indication: Plasma cell myeloma
     Dosage: 80 MG, WEEKLY
     Route: 048
     Dates: start: 20220912
  2. ACYCLOVIR ABBOTT VIAL [Concomitant]
  3. ATORVASTATIN [Concomitant]
     Active Substance: ATORVASTATIN
  4. BUTALBITAL, ACETAMINOPHEN, AND CAFFEINE [Concomitant]
     Active Substance: ACETAMINOPHEN\BUTALBITAL\CAFFEINE
  5. CARTIA XT [Concomitant]
     Active Substance: DILTIAZEM HYDROCHLORIDE
  6. CARVEDILOL [Concomitant]
     Active Substance: CARVEDILOL
  7. PLAVIX [Concomitant]
     Active Substance: CLOPIDOGREL BISULFATE
  8. DARZALEX [Concomitant]
     Active Substance: DARATUMUMAB
  9. LASIX [Concomitant]
     Active Substance: FUROSEMIDE
  10. GABAPENTIN [Concomitant]
     Active Substance: GABAPENTIN
  11. LOSARTAN [Concomitant]
     Active Substance: LOSARTAN
  12. NORCO [Concomitant]
     Active Substance: ACETAMINOPHEN\HYDROCODONE BITARTRATE
  13. LOPERAMIDE [Concomitant]
     Active Substance: LOPERAMIDE
  14. SPIRONOLACTONE [Concomitant]
     Active Substance: SPIRONOLACTONE
  15. SYNTHROID [Concomitant]
     Active Substance: LEVOTHYROXINE SODIUM
  16. DECADRON [Concomitant]
     Active Substance: DEXAMETHASONE

REACTIONS (4)
  - Dysphonia [Unknown]
  - Insomnia [Unknown]
  - Headache [Unknown]
  - Nausea [Unknown]

NARRATIVE: CASE EVENT DATE: 20220901
